FAERS Safety Report 22027008 (Version 2)
Quarter: 2023Q2

REPORT INFORMATION
  Report Type: Report from Study
  Country: US (occurrence: US)
  Receive Date: 20230223
  Receipt Date: 20230529
  Transmission Date: 20230722
  Serious: Yes (Other)
  Sender: FDA-Public Use
  Company Number: US-SA-SAC20230221001170

PATIENT
  Age: 65 Year
  Sex: Male

DRUGS (17)
  1. BELUMOSUDIL MESYLATE [Suspect]
     Active Substance: BELUMOSUDIL MESYLATE
     Indication: Graft versus host disease
     Dosage: 200 MG, BID
     Route: 048
     Dates: start: 20220909
  2. PREDNISONE [Concomitant]
     Active Substance: PREDNISONE
     Dosage: BEING WEANED OFF 2 MG EVERY WEEKS
  3. ACYCLOVIR [Concomitant]
     Active Substance: ACYCLOVIR
  4. ALLOPURINOL [Concomitant]
     Active Substance: ALLOPURINOL
  5. CRESTOR [Concomitant]
     Active Substance: ROSUVASTATIN CALCIUM
  6. FLUCONAZOLE [Concomitant]
     Active Substance: FLUCONAZOLE
  7. HUMALOG [Concomitant]
     Active Substance: INSULIN LISPRO
  8. LANTUS [Concomitant]
     Active Substance: INSULIN GLARGINE
  9. LASIX [Concomitant]
     Active Substance: FUROSEMIDE
     Dosage: QD
  10. METOPROLOL TARTRATE [Concomitant]
     Active Substance: METOPROLOL TARTRATE
  11. POTASSIUM CHLORIDE [Concomitant]
     Active Substance: POTASSIUM CHLORIDE
  12. PRILOSEC [Concomitant]
     Active Substance: OMEPRAZOLE MAGNESIUM
  13. TETRACYCLINE HYDROCHLORIDE [Concomitant]
     Active Substance: TETRACYCLINE HYDROCHLORIDE
  14. ELIQUIS [Concomitant]
     Active Substance: APIXABAN
     Dosage: BID
  15. ERYTHROMYCIN [Concomitant]
     Active Substance: ERYTHROMYCIN
  16. FLUOROMETHOLONE [Concomitant]
     Active Substance: FLUOROMETHOLONE
  17. TRICOR [TINIDAZOLE] [Concomitant]

REACTIONS (10)
  - Cataract [Not Recovered/Not Resolved]
  - Chills [Recovered/Resolved]
  - Retching [Recovered/Resolved]
  - Body temperature increased [Recovered/Resolved]
  - Catheterisation cardiac [Unknown]
  - Pyrexia [Recovered/Resolved]
  - Folliculitis [Recovered/Resolved]
  - Fatigue [Not Recovered/Not Resolved]
  - Diarrhoea [Recovered/Resolved]
  - Rash [Unknown]
